FAERS Safety Report 11213515 (Version 2)
Quarter: 2015Q3

REPORT INFORMATION
  Report Type: Report from Study
  Country: MX (occurrence: MX)
  Receive Date: 20150623
  Receipt Date: 20150702
  Transmission Date: 20151125
  Serious: Yes (Other)
  Sender: FDA-Public Use
  Company Number: PHHY2015MX074261

PATIENT
  Age: 81 Year
  Sex: Female

DRUGS (2)
  1. EXFORGE [Suspect]
     Active Substance: AMLODIPINE BESYLATE\VALSARTAN
     Indication: HYPERTENSION
     Dosage: (YEARS AGO)
     Route: 065
  2. EXFORGE [Suspect]
     Active Substance: AMLODIPINE BESYLATE\VALSARTAN
     Dosage: 0.5 DF (160/5 MG), QD
     Route: 065

REACTIONS (3)
  - Off label use [Not Recovered/Not Resolved]
  - Blood pressure increased [Unknown]
  - Abasia [Unknown]

NARRATIVE: CASE EVENT DATE: 20150616
